FAERS Safety Report 16137818 (Version 1)
Quarter: 2019Q1

REPORT INFORMATION
  Report Type: Spontaneous
  Country: DK (occurrence: DK)
  Receive Date: 20190330
  Receipt Date: 20190330
  Transmission Date: 20190418
  Serious: Yes (Hospitalization)
  Sender: FDA-Public Use
  Company Number: DK-AUROBINDO-AUR-APL-2019-016813

PATIENT

DRUGS (4)
  1. FOLINIC ACID [Concomitant]
     Active Substance: LEUCOVORIN
     Indication: VITAMIN SUPPLEMENTATION
     Dosage: 5 MILLIGRAM,5 MG THURSDAY AND 5 MG SATURDAY
     Route: 048
     Dates: start: 20130715, end: 20181022
  2. UNIKALK FORTE [Concomitant]
     Indication: VITAMIN SUPPLEMENTATION
     Dosage: 2 DOSAGE FORM, DAILY
     Route: 048
     Dates: start: 20130715
  3. ALENDRONIC ACID 70 MG TABLETS [Suspect]
     Active Substance: ALENDRONIC ACID
     Indication: OSTEOPOROSIS
     Dosage: 70 MILLIGRAM, EVERY WEEK
     Route: 048
     Dates: start: 201405
  4. METHOTREXATE. [Suspect]
     Active Substance: METHOTREXATE
     Indication: RHEUMATOID ARTHRITIS
     Dosage: UNK,DOSAGE: UNKNOWN, STRENGTH: UNKNOWN
     Route: 058
     Dates: start: 20130715

REACTIONS (4)
  - Pain [Unknown]
  - Impaired healing [Unknown]
  - Stress fracture [Unknown]
  - Wheelchair user [Unknown]

NARRATIVE: CASE EVENT DATE: 201510
